FAERS Safety Report 9236885 (Version 3)
Quarter: 2013Q2

REPORT INFORMATION
  Report Type: Spontaneous
  Country: LV (occurrence: LV)
  Receive Date: 20130417
  Receipt Date: 20130501
  Transmission Date: 20140414
  Serious: Yes (Hospitalization, Other)
  Sender: FDA-Public Use
  Company Number: LV-BAXTER-2013BAX011349

PATIENT
  Age: 68 Year
  Sex: Male

DRUGS (10)
  1. PHYSIONEAL 40 GLUCOSE 2,27 % W/V/22,7 MG/ML KIDUMS PERITONEALAI DIALI [Suspect]
     Indication: RENAL FAILURE CHRONIC
     Route: 033
     Dates: start: 20130320
  2. PHYSIONEAL 40 GLUCOSE 2,27 % W/V/22,7 MG/ML KIDUMS PERITONEALAI DIALI [Suspect]
     Indication: PERITONEAL DIALYSIS
  3. EXTRANEAL SKIDUMS PERITONEALAI DIALIZEI [Suspect]
     Indication: RENAL FAILURE CHRONIC
     Route: 033
     Dates: start: 20130320
  4. EXTRANEAL SKIDUMS PERITONEALAI DIALIZEI [Suspect]
     Indication: PERITONEAL DIALYSIS
  5. ARANESP [Concomitant]
     Indication: PRODUCT USED FOR UNKNOWN INDICATION
     Route: 065
  6. FERRUM-LEK [Concomitant]
     Indication: PRODUCT USED FOR UNKNOWN INDICATION
     Route: 065
  7. ROCALTROL [Concomitant]
     Indication: PRODUCT USED FOR UNKNOWN INDICATION
     Route: 065
  8. CONCOR [Concomitant]
     Indication: PRODUCT USED FOR UNKNOWN INDICATION
     Route: 065
  9. CARDURA [Concomitant]
     Indication: PRODUCT USED FOR UNKNOWN INDICATION
     Route: 065
  10. LERCAPIN [Concomitant]
     Indication: PRODUCT USED FOR UNKNOWN INDICATION
     Route: 065

REACTIONS (7)
  - Peritonitis bacterial [Recovered/Resolved]
  - Catheter site inflammation [Unknown]
  - Pseudomonas infection [Unknown]
  - Product container issue [Unknown]
  - Abdominal symptom [Unknown]
  - Diarrhoea [Unknown]
  - Peritoneal dialysis complication [Unknown]
